FAERS Safety Report 9540630 (Version 1)
Quarter: 2013Q3

REPORT INFORMATION
  Report Type: Spontaneous
  Country: US (occurrence: US)
  Receive Date: 20130920
  Receipt Date: 20130920
  Transmission Date: 20140515
  Serious: Yes (Other)
  Sender: FDA-Public Use
  Company Number: ALCN2013US004692

PATIENT
  Sex: 0

DRUGS (4)
  1. PILOCARPINE HCL [Suspect]
     Indication: GLAUCOMA
     Dosage: 1 GTT, QID
     Route: 047
     Dates: start: 20130225, end: 201303
  2. PILOCARPINE HCL [Suspect]
     Dosage: 1 GTT, QID
     Route: 047
     Dates: start: 201303
  3. COMBIGAN [Concomitant]
     Indication: GLAUCOMA
     Dosage: 1 DF, UNK
     Route: 047
  4. LUMIGAN [Concomitant]
     Indication: GLAUCOMA
     Dosage: 1 DF, UNK
     Route: 047

REACTIONS (2)
  - Hallucination, visual [Recovering/Resolving]
  - Visual impairment [Recovering/Resolving]
